FAERS Safety Report 12448166 (Version 2)
Quarter: 2017Q1

REPORT INFORMATION
  Report Type: Spontaneous
  Country: US (occurrence: US)
  Receive Date: 20160608
  Receipt Date: 20170105
  Transmission Date: 20170428
  Serious: No
  Sender: FDA-Public Use
  Company Number: GXBR2016US001451

PATIENT
  Age: 36 Year
  Sex: Female
  Weight: 86.17 kg

DRUGS (1)
  1. GLATOPA [Suspect]
     Active Substance: GLATIRAMER ACETATE
     Indication: MULTIPLE SCLEROSIS
     Dosage: 20 MG/ML, QD
     Route: 065
     Dates: start: 2015, end: 201511

REACTIONS (5)
  - Gait disturbance [Recovering/Resolving]
  - Uhthoff^s phenomenon [Recovering/Resolving]
  - Memory impairment [Recovering/Resolving]
  - Drug ineffective [Unknown]
  - Hypoaesthesia [Recovering/Resolving]

NARRATIVE: CASE EVENT DATE: 201504
